FAERS Safety Report 13875470 (Version 2)
Quarter: 2017Q4

REPORT INFORMATION
  Report Type: Spontaneous
  Country: JP (occurrence: JP)
  Receive Date: 20170817
  Receipt Date: 20171108
  Transmission Date: 20180320
  Serious: Yes (Death, Other)
  Sender: FDA-Public Use
  Company Number: JP-ROCHE-1950814

PATIENT
  Age: 54 Year
  Sex: Female
  Weight: 49 kg

DRUGS (4)
  1. AVASTIN [Suspect]
     Active Substance: BEVACIZUMAB
     Route: 041
     Dates: start: 20170405, end: 20170510
  2. PACLITAXEL. [Concomitant]
     Active Substance: PACLITAXEL
     Indication: OVARIAN CANCER
     Route: 041
     Dates: start: 20170405, end: 20170524
  3. AVASTIN [Suspect]
     Active Substance: BEVACIZUMAB
     Indication: OVARIAN CANCER
     Route: 041
     Dates: start: 20160810, end: 20161228
  4. DOXIL [Concomitant]
     Active Substance: DOXORUBICIN HYDROCHLORIDE
     Indication: OVARIAN CANCER
     Dosage: DOSAGE IS UNCERTAIN.
     Route: 041
     Dates: start: 20160810, end: 20161228

REACTIONS (5)
  - Ovarian cancer [Fatal]
  - Gastrointestinal perforation [Fatal]
  - Tumour necrosis [Unknown]
  - Depressed level of consciousness [Unknown]
  - Blood pressure decreased [Unknown]

NARRATIVE: CASE EVENT DATE: 20170605
